FAERS Safety Report 13195850 (Version 3)
Quarter: 2017Q2

REPORT INFORMATION
  Report Type: Report from Study
  Country: CA (occurrence: CA)
  Receive Date: 20170208
  Receipt Date: 20170421
  Transmission Date: 20170830
  Serious: Yes (Death, Other)
  Sender: FDA-Public Use
  Company Number: PHHY2017CA018495

PATIENT
  Sex: Female

DRUGS (1)
  1. ZYKADIA [Suspect]
     Active Substance: CERITINIB
     Indication: NON-SMALL CELL LUNG CANCER
     Dosage: 750 MG, QD
     Route: 048
     Dates: start: 20170117

REACTIONS (6)
  - Abasia [Recovering/Resolving]
  - Death [Fatal]
  - Diarrhoea [Unknown]
  - Fatigue [Unknown]
  - Cough [Recovering/Resolving]
  - Nausea [Unknown]
